FAERS Safety Report 25773139 (Version 1)
Quarter: 2025Q3

REPORT INFORMATION
  Report Type: Spontaneous
  Country: US (occurrence: None)
  Receive Date: 20250905
  Receipt Date: 20250905
  Transmission Date: 20251021
  Serious: Yes (Hospitalization)
  Sender: FDA-CTU
  Company Number: None

PATIENT
  Age: 67 Year
  Sex: Female

DRUGS (11)
  1. TOBRAMYCIN [Suspect]
     Active Substance: TOBRAMYCIN
     Indication: Lung transplant
     Dosage: 4 ML BID RESPIRATORY (INHALATION)
     Route: 055
     Dates: start: 20250816
  2. TACROLIMUS [Concomitant]
     Active Substance: TACROLIMUS
  3. TACROLIMUS 0.5MG (HALF MG) CAPSULES [Concomitant]
  4. MYCOPHENOLATE MOFETIL [Concomitant]
     Active Substance: MYCOPHENOLATE MOFETIL
  5. VALGANCICLOVIR 450MG TABLETS [Concomitant]
  6. MIRTAZAPINE [Concomitant]
     Active Substance: MIRTAZAPINE
  7. CLONAZEPAM ODT 0.25MG TABLETS [Concomitant]
  8. OMEPRAZOLE [Concomitant]
     Active Substance: OMEPRAZOLE
  9. VITAMIN D3 50MCG TABLETS [Concomitant]
  10. ALENDRONATE [Concomitant]
     Active Substance: ALENDRONATE SODIUM
  11. ALBUTEROL 0.083%(2.5MG/3ML) INH SOL [Concomitant]

REACTIONS (2)
  - Malnutrition [None]
  - Malaise [None]

NARRATIVE: CASE EVENT DATE: 20250901
